FAERS Safety Report 5102863-3 (Version None)
Quarter: 2006Q3

REPORT INFORMATION
  Report Type: 
  Country: None (occurrence: None)
  Receive Date: 20060912
  Receipt Date: 20060809
  Transmission Date: 20061208
  Serious: Yes (Life-Threatening, Hospitalization)
  Sender: FDA-Public Use
  Company Number: JP-SANOFI-SYNTHELABO-F01200601812

PATIENT
  Sex: Male

DRUGS (4)
  1. CALCIUM LEVOFOLINATE [Suspect]
     Route: 042
  2. FLUOROURACIL [Suspect]
     Route: 042
  3. AVASTIN [Suspect]
     Route: 042
  4. 6OXALIPLATIN [Suspect]
     Indication: COLORECTAL CANCER
     Route: 042

REACTIONS (6)
  - ABDOMINAL ABSCESS [None]
  - ABDOMINAL HAEMATOMA [None]
  - GASTROINTESTINAL PERFORATION [None]
  - ILEUS [None]
  - MALIGNANT PERITONEAL NEOPLASM [None]
  - PERITONITIS [None]
